FAERS Safety Report 4297872-0 (Version None)
Quarter: 2004Q1

REPORT INFORMATION
  Report Type: 
  Country: None (occurrence: None)
  Receive Date: 20040217
  Receipt Date: 20040217
  Transmission Date: 20041129
  Serious: No
  Sender: FDA-Public Use
  Company Number: None

PATIENT

DRUGS (2)
  1. LASIX GENERIC [Suspect]
     Indication: CARDIAC FAILURE CONGESTIVE
     Dosage: 80 MG BID ORAL
     Route: 048
     Dates: start: 20031101
  2. LASIX GENERIC [Suspect]
     Indication: CARDIOMYOPATHY
     Dosage: 80 MG BID ORAL
     Route: 048
     Dates: start: 20031101

REACTIONS (3)
  - DYSPNOEA [None]
  - OEDEMA [None]
  - PHARMACEUTICAL PRODUCT COMPLAINT [None]
